FAERS Safety Report 17574938 (Version 4)
Quarter: 2020Q2

REPORT INFORMATION
  Report Type: Report from Study
  Country: US (occurrence: US)
  Receive Date: 20200324
  Receipt Date: 20200424
  Transmission Date: 20200713
  Serious: Yes (Other)
  Sender: FDA-Public Use
  Company Number: US-AMGEN-USASP2020046829

PATIENT
  Sex: Female

DRUGS (6)
  1. ZYFLAMEND [Concomitant]
     Dosage: UNK
  2. OSOPAN [Concomitant]
     Dosage: UNK
  3. ALGAE CALCIUM [Concomitant]
  4. PROLIA [Suspect]
     Active Substance: DENOSUMAB
     Indication: PRODUCT USED FOR UNKNOWN INDICATION
     Dosage: UNK
     Route: 065
  5. COLLAGEN [Concomitant]
     Active Substance: COLLAGEN
     Dosage: UNK
  6. STRONTIUM [Concomitant]
     Active Substance: STRONTIUM

REACTIONS (11)
  - Chest pain [Recovered/Resolved]
  - Drug withdrawal syndrome [Unknown]
  - Noninfective gingivitis [Recovered/Resolved]
  - Gait disturbance [Recovered/Resolved]
  - Spondylitis [Recovered/Resolved]
  - Breast tenderness [Unknown]
  - Arthralgia [Recovered/Resolved]
  - Constipation [Recovered/Resolved]
  - Gastrooesophageal reflux disease [Recovered/Resolved]
  - Pericarditis [Recovered/Resolved]
  - Palpitations [Recovered/Resolved]
